FAERS Safety Report 4268841-1 (Version None)
Quarter: 2004Q1

REPORT INFORMATION
  Report Type: 
  Country: None (occurrence: None)
  Receive Date: 20040112
  Receipt Date: 20040112
  Transmission Date: 20041129
  Serious: No
  Sender: FDA-Public Use
  Company Number: None

PATIENT
  Sex: Female

DRUGS (1)
  1. ARIPIPRAZOLE 20 MG [Suspect]
     Indication: PSYCHOTIC DISORDER
     Dosage: 20 MG AM ORAL
     Route: 048
     Dates: start: 20031023, end: 20031202

REACTIONS (1)
  - INSOMNIA [None]
